FAERS Safety Report 9622405 (Version 8)
Quarter: 2015Q4

REPORT INFORMATION
  Report Type: Spontaneous
  Country: US (occurrence: US)
  Receive Date: 20131015
  Receipt Date: 20151112
  Transmission Date: 20160305
  Serious: Yes (Death, Hospitalization, Disabling, Other)
  Sender: FDA-Public Use
  Company Number: US-009507513-1310USA006000

PATIENT
  Sex: Female
  Weight: 83.9 kg

DRUGS (3)
  1. JANUVIA [Suspect]
     Active Substance: SITAGLIPTIN PHOSPHATE
     Indication: TYPE 2 DIABETES MELLITUS
     Dosage: 100 MG, QD
     Route: 048
     Dates: start: 20091124, end: 201007
  2. BYETTA [Suspect]
     Active Substance: EXENATIDE
     Indication: TYPE 2 DIABETES MELLITUS
     Dosage: 10 MICROGRAM, QD
     Route: 048
     Dates: start: 20070529, end: 20081223
  3. JANUVIA [Suspect]
     Active Substance: SITAGLIPTIN PHOSPHATE
     Dosage: 100 MG, QD
     Route: 048
     Dates: end: 20110615

REACTIONS (41)
  - Metastases to bone [Unknown]
  - Coronary artery bypass [Unknown]
  - Breast abscess [Unknown]
  - Gait disturbance [Unknown]
  - Pancreatic carcinoma stage IV [Fatal]
  - Hypercalcaemia [Unknown]
  - Seasonal allergy [Unknown]
  - Neutropenia [Unknown]
  - Metastases to peritoneum [Unknown]
  - Acute kidney injury [Fatal]
  - Hypophosphataemia [Recovering/Resolving]
  - Paralysis [Recovered/Resolved]
  - Thyroid neoplasm [Unknown]
  - Splenic vein thrombosis [Unknown]
  - Ascites [Unknown]
  - Splenomegaly [Unknown]
  - Vasospasm [Unknown]
  - Myocardial infarction [Unknown]
  - Adnexa uteri mass [Unknown]
  - Hypovolaemia [Recovering/Resolving]
  - Ascites [Unknown]
  - Metastases to liver [Unknown]
  - Hypercalcaemia [Recovering/Resolving]
  - Ovarian cyst [Unknown]
  - Hyperlipidaemia [Unknown]
  - Metastases to lung [Unknown]
  - Pancreatitis [Unknown]
  - Portal hypertension [Unknown]
  - Dental care [Unknown]
  - Hepatic cirrhosis [Unknown]
  - Myocardial infarction [Unknown]
  - Neuropathy peripheral [Unknown]
  - Fatigue [Unknown]
  - Metabolic acidosis [Fatal]
  - Hypertension [Unknown]
  - Renal disorder [Unknown]
  - Lymphadenopathy [Unknown]
  - Pleural effusion [Unknown]
  - Radiotherapy [Unknown]
  - Pleural effusion [Unknown]
  - Catheter site pain [Unknown]

NARRATIVE: CASE EVENT DATE: 201005
